FAERS Safety Report 12416150 (Version 2)
Quarter: 2016Q2

REPORT INFORMATION
  Report Type: Spontaneous
  Country: ES (occurrence: ES)
  Receive Date: 20160530
  Receipt Date: 20160603
  Transmission Date: 20160815
  Serious: Yes (Death, Hospitalization)
  Sender: FDA-Public Use
  Company Number: ES-UCBSA-2016019918

PATIENT
  Age: 78 Year
  Sex: Female

DRUGS (6)
  1. KEPPRA [Suspect]
     Active Substance: LEVETIRACETAM
     Indication: EPILEPSY
     Dosage: 1500 MG, ONCE DAILY (QD)
     Route: 048
     Dates: start: 201402, end: 20151122
  2. TROMALYT [Suspect]
     Active Substance: ASPIRIN
     Indication: ATRIAL FIBRILLATION
     Dosage: 150 MG, ONCE DAILY (QD)
     Route: 048
     Dates: start: 201402, end: 20151122
  3. ESOMEPRAZOL [Concomitant]
     Active Substance: ESOMEPRAZOLE
     Indication: GASTROOESOPHAGEAL REFLUX PROPHYLAXIS
     Route: 048
     Dates: start: 201405, end: 20151122
  4. TRANXILIUM [Concomitant]
     Active Substance: CLORAZEPATE DIPOTASSIUM
     Indication: DEPRESSION
     Dosage: 10 MG, ONCE DAILY (QD)
     Route: 048
     Dates: start: 200810, end: 20151122
  5. HIDROFEROL [Concomitant]
     Active Substance: CALCIFEDIOL
     Indication: HYPERPARATHYROIDISM
     Dosage: 226 MG, EV 15 DAYS
     Route: 048
     Dates: start: 200805, end: 20151122
  6. MOTIVAN(PAROXETINE HYDROCHLORIDE) [Suspect]
     Active Substance: PAROXETINE HYDROCHLORIDE
     Indication: DEPRESSION
     Dosage: 20 MG, ONCE DAILY (QD)
     Route: 048
     Dates: start: 201004, end: 20151122

REACTIONS (7)
  - Cerebral haematoma [Fatal]
  - Subarachnoid haemorrhage [None]
  - Neurogenic shock [None]
  - Fall [None]
  - Intracranial mass [None]
  - Brain death [None]
  - Subdural haematoma [None]

NARRATIVE: CASE EVENT DATE: 20151122
